FAERS Safety Report 7713425-3 (Version None)
Quarter: 2011Q3

REPORT INFORMATION
  Report Type: 
  Country: None (occurrence: None)
  Receive Date: 20110826
  Receipt Date: 20110816
  Transmission Date: 20111222
  Serious: Yes (Life-Threatening, Hospitalization, Other)
  Sender: FDA-Public Use
  Company Number: US-JNJFOC-20110809363

PATIENT
  Age: 69 Year
  Sex: Male

DRUGS (2)
  1. OXYBUTYNIN [Suspect]
     Indication: URINARY INCONTINENCE
     Route: 065
  2. OXYBUTYNIN [Suspect]
     Route: 065

REACTIONS (9)
  - RENAL FAILURE ACUTE [None]
  - URINARY RETENTION [None]
  - DYSPEPSIA [None]
  - DELIRIUM [None]
  - INCONTINENCE [None]
  - CONTRAINDICATION TO MEDICAL TREATMENT [None]
  - HYDRONEPHROSIS [None]
  - CHEST PAIN [None]
  - MOOD ALTERED [None]
